FAERS Safety Report 13059607 (Version 2)
Quarter: 2017Q1

REPORT INFORMATION
  Report Type: Spontaneous
  Country: JP (occurrence: JP)
  Receive Date: 20161223
  Receipt Date: 20170103
  Transmission Date: 20170428
  Serious: Yes (Other)
  Sender: FDA-Public Use
  Company Number: JP-SA-2016SA232680

PATIENT
  Age: 67 Year
  Sex: Male

DRUGS (1)
  1. RENAGEL [Suspect]
     Active Substance: SEVELAMER HYDROCHLORIDE
     Indication: HYPERPHOSPHATAEMIA
     Route: 048

REACTIONS (6)
  - Aspiration [Unknown]
  - Foreign body [Unknown]
  - Atelectasis [Unknown]
  - Dyspnoea [Unknown]
  - Cough [Unknown]
  - Stenosis [Unknown]

NARRATIVE: CASE EVENT DATE: 201606
